FAERS Safety Report 7249783-6 (Version None)
Quarter: 2011Q1

REPORT INFORMATION
  Report Type: 
  Country: None (occurrence: None)
  Receive Date: 20110128
  Receipt Date: 20100322
  Transmission Date: 20110831
  Serious: No
  Sender: FDA-Public Use
  Company Number: A0852411A

PATIENT
  Age: 51 Year
  Sex: Male
  Weight: 77.3 kg

DRUGS (2)
  1. ZYBAN [Suspect]
     Route: 065
     Dates: start: 20090101
  2. CHANTIX [Suspect]
     Dosage: 1MG TWICE PER DAY
     Route: 048

REACTIONS (13)
  - ARTHRALGIA [None]
  - DISTURBANCE IN ATTENTION [None]
  - FATIGUE [None]
  - ASTHENIA [None]
  - INSOMNIA [None]
  - NIGHT SWEATS [None]
  - COUGH [None]
  - PAIN [None]
  - DYSPNOEA [None]
  - CHILLS [None]
  - DRUG INEFFECTIVE [None]
  - POOR QUALITY SLEEP [None]
  - DISSOCIATION [None]
